FAERS Safety Report 12995010 (Version 1)
Quarter: 2016Q4

REPORT INFORMATION
  Report Type: Spontaneous
  Country: US (occurrence: US)
  Receive Date: 20161202
  Receipt Date: 20161202
  Transmission Date: 20170207
  Serious: Yes (Other)
  Sender: FDA-Public Use
  Company Number: US-BEH-2016075640

PATIENT
  Age: 79 Year
  Sex: Male
  Weight: 79.37 kg

DRUGS (1)
  1. HIZENTRA [Suspect]
     Active Substance: HUMAN IMMUNOGLOBULIN G
     Indication: IMMUNODEFICIENCY COMMON VARIABLE
     Dosage: 17GM/85ML, QOW
     Route: 058
     Dates: start: 20140717

REACTIONS (4)
  - Prostatic operation [Unknown]
  - Post procedural urine leak [Unknown]
  - Urine output decreased [Unknown]
  - Radiotherapy [Unknown]

NARRATIVE: CASE EVENT DATE: 2016
